FAERS Safety Report 10109200 (Version 1)
Quarter: 2014Q2

REPORT INFORMATION
  Report Type: Report from Study
  Country: US (occurrence: US)
  Receive Date: 20140425
  Receipt Date: 20140425
  Transmission Date: 20141212
  Serious: Yes (Other)
  Sender: FDA-Public Use
  Company Number: US-SA-2014SA049578

PATIENT
  Age: 59 Year
  Sex: Female

DRUGS (1)
  1. LANTUS [Suspect]
     Indication: DIABETES MELLITUS
     Dosage: VIAL DOSE:60 UNIT(S)
     Route: 058

REACTIONS (3)
  - Wrist fracture [Unknown]
  - Fall [Unknown]
  - Off label use [Unknown]
